FAERS Safety Report 6125454-4 (Version None)
Quarter: 2009Q1

REPORT INFORMATION
  Report Type: 
  Country: None (occurrence: None)
  Receive Date: 20090320
  Receipt Date: 20090310
  Transmission Date: 20090719
  Serious: Yes (Other)
  Sender: FDA-Public Use
  Company Number: PHHY2009CA08785

PATIENT
  Sex: Female

DRUGS (1)
  1. ACLASTA [Suspect]
     Indication: OSTEOPOROSIS
     Dosage: UNK
     Dates: start: 20080417

REACTIONS (5)
  - ABNORMAL BEHAVIOUR [None]
  - ANAPHYLACTIC SHOCK [None]
  - ASTHENIA [None]
  - BONE PAIN [None]
  - GENERAL PHYSICAL HEALTH DETERIORATION [None]
